FAERS Safety Report 14836542 (Version 1)
Quarter: 2018Q2

REPORT INFORMATION
  Report Type: Spontaneous
  Country: FR (occurrence: FR)
  Receive Date: 20180502
  Receipt Date: 20180502
  Transmission Date: 20180711
  Serious: Yes (Other)
  Sender: FDA-Public Use
  Company Number: FR-AUROBINDO-AUR-APL-2018-021671

PATIENT
  Age: 74 Year
  Sex: Male
  Weight: 67 kg

DRUGS (9)
  1. MIRTAZAPINE ARROW 15MG ORODISPERSIBLE TABLETS 15MG [Suspect]
     Active Substance: MIRTAZAPINE
     Indication: DEPRESSION
     Dosage: 0.5 DOSAGE FORM, ONCE A DAY
     Route: 048
     Dates: start: 20180108
  2. SERESTA [Suspect]
     Active Substance: OXAZEPAM
     Indication: ANXIETY
     Route: 048
     Dates: start: 20180108
  3. IMOVANE [Suspect]
     Active Substance: ZOPICLONE
     Indication: ANXIETY
     Dosage: 1 DOSAGE FORM, ONCE A DAY
     Route: 048
  4. KARDEGIC [Concomitant]
     Active Substance: ASPIRIN DL-LYSINE
     Indication: CEREBROVASCULAR ACCIDENT
     Dosage: 1 DOSAGE FORM, ONCE A DAY
     Route: 048
  5. DAFALGAN [Concomitant]
     Active Substance: ACETAMINOPHEN
     Indication: PRODUCT USED FOR UNKNOWN INDICATION
     Dosage: 500 MILLIGRAM
     Route: 048
     Dates: start: 20180108
  6. DEPAKOTE [Suspect]
     Active Substance: DIVALPROEX SODIUM
     Indication: BIPOLAR DISORDER
     Dosage: 3 DOSAGE FORM, ONCE A DAY
     Route: 048
  7. ATORVASTATINE [Concomitant]
     Active Substance: ATORVASTATIN
     Indication: CEREBROVASCULAR ACCIDENT
     Route: 048
  8. PARKINANE LP [Suspect]
     Active Substance: TRIHEXYPHENIDYL HYDROCHLORIDE
     Indication: MUSCULOSKELETAL STIFFNESS
     Dosage: 2 DOSAGE FORM, ONCE A DAY
     Dates: start: 20180120, end: 20180121
  9. LANSOPRAZOLE 15MG [Concomitant]
     Active Substance: LANSOPRAZOLE
     Indication: PRODUCT USED FOR UNKNOWN INDICATION
     Dosage: 1 DOSAGE FORM, ONCE A DAY
     Route: 048

REACTIONS (3)
  - Tremor [Recovered/Resolved]
  - Mania [Recovered/Resolved]
  - Confusional state [Recovered/Resolved]

NARRATIVE: CASE EVENT DATE: 20180120
